FAERS Safety Report 7568467-8 (Version None)
Quarter: 2011Q2

REPORT INFORMATION
  Report Type: 
  Country: None (occurrence: None)
  Receive Date: 20110623
  Receipt Date: 20110610
  Transmission Date: 20111010
  Serious: Yes (Hospitalization)
  Sender: FDA-Public Use
  Company Number: BR-ELI_LILLY_AND_COMPANY-BR201105005749

PATIENT
  Age: 48 Year
  Sex: Female
  Weight: 56 kg

DRUGS (8)
  1. CYMBALTA [Suspect]
     Indication: DEPRESSION
     Dosage: 30 MG, EACH MORNING
     Route: 065
     Dates: start: 20110413, end: 20110401
  2. CYMBALTA [Suspect]
     Dosage: 60 MG, EACH MORNING
     Route: 065
     Dates: start: 20110401, end: 20110401
  3. NARATRIPTAN [Concomitant]
     Dosage: UNK, UNKNOWN
     Route: 065
  4. CLONAZEPAM [Concomitant]
     Dosage: 1 MG, EACH EVENING
     Route: 065
     Dates: start: 20110413
  5. CAPTOPRIL [Concomitant]
     Dosage: UNK, UNKNOWN
     Route: 065
  6. CYMBALTA [Suspect]
     Dosage: 30 MG, EACH EVENING
     Route: 065
     Dates: start: 20110429, end: 20110512
  7. CYMBALTA [Suspect]
     Dosage: 60 MG, EACH MORNING
     Dates: start: 20110429, end: 20110512
  8. CLONAZEPAM [Concomitant]
     Dosage: 0.5 MG, QD
     Route: 065

REACTIONS (2)
  - URTICARIA [None]
  - OROPHARYNGEAL PAIN [None]
